FAERS Safety Report 18990883 (Version 1)
Quarter: 2021Q1

REPORT INFORMATION
  Report Type: Spontaneous
  Country: US (occurrence: US)
  Receive Date: 20210310
  Receipt Date: 20210310
  Transmission Date: 20210420
  Serious: Yes (Life-Threatening, Other)
  Sender: FDA-Public Use
  Company Number: US-SUN PHARMACEUTICAL INDUSTRIES LTD-2021R1-284969

PATIENT
  Sex: Female
  Weight: 135 kg

DRUGS (1)
  1. ACETAMINOPHEN. [Suspect]
     Active Substance: ACETAMINOPHEN
     Indication: PRODUCT USED FOR UNKNOWN INDICATION
     Dosage: 125 GRAM
     Route: 048

REACTIONS (5)
  - Areflexia [Unknown]
  - Mental status changes [Unknown]
  - Overdose [Unknown]
  - Suicide attempt [Unknown]
  - Unresponsive to stimuli [Unknown]
